FAERS Safety Report 9778497 (Version 2)
Quarter: 2014Q1

REPORT INFORMATION
  Report Type: Spontaneous
  Country: NZ (occurrence: NZ)
  Receive Date: 20131223
  Receipt Date: 20140108
  Transmission Date: 20141002
  Serious: Yes (Hospitalization)
  Sender: FDA-Public Use
  Company Number: NZ-B.I. PHARMACEUTICALS,INC./RIDGEFIELD-2013-BI-42350AU

PATIENT
  Age: 84 Year
  Sex: Female

DRUGS (10)
  1. PRADAXA [Suspect]
     Indication: ATRIAL FIBRILLATION
     Dosage: 220 MG
     Dates: start: 20131109
  2. CHOLECALCIFEROL [Concomitant]
  3. LACRILUBE [Concomitant]
  4. LAXSOL [Concomitant]
  5. MOVICOL [Concomitant]
  6. ZOLENDRONATE [Concomitant]
     Indication: OSTEOPOROSIS
  7. INDAPAMIDE HEMIHYDRATE [Concomitant]
     Dosage: 2.5 MG
  8. OMEPRAZOLE [Concomitant]
     Dosage: 20 MG
  9. METOPROLOL [Concomitant]
     Dosage: 75 MG
  10. DIGOXIN [Concomitant]
     Indication: ATRIAL FIBRILLATION
     Dosage: 62.4 MG
     Dates: start: 20111109

REACTIONS (10)
  - Pulmonary embolism [Recovered/Resolved]
  - Gastrointestinal hypomotility [Recovered/Resolved]
  - Lumbar vertebral fracture [Unknown]
  - Urinary tract infection [Unknown]
  - Pneumonia [Unknown]
  - Atrial fibrillation [Unknown]
  - Urinary retention [Recovered/Resolved]
  - Glycosuria [Unknown]
  - Local swelling [Unknown]
  - Oedema peripheral [Unknown]
